FAERS Safety Report 4424119-4 (Version None)
Quarter: 2004Q3

REPORT INFORMATION
  Report Type: 
  Country: None (occurrence: None)
  Receive Date: 20040812
  Receipt Date: 20040804
  Transmission Date: 20050211
  Serious: Yes (Hospitalization)
  Sender: FDA-Public Use
  Company Number: US-BRISTOL-MYERS SQUIBB COMPANY-12659769

PATIENT
  Age: 51 Year
  Sex: Female
  Weight: 108 kg

DRUGS (10)
  1. TAXOL [Suspect]
     Indication: BREAST CANCER
     Dosage: 1ST DOSE: 05MAY04
     Route: 042
     Dates: start: 20040708, end: 20040708
  2. CARBOPLATIN [Suspect]
     Indication: BREAST CANCER
     Dosage: AUC 6 ON WK 1,5,9,13 PRIOR DOSING: 05MAY, 03JUN
     Dates: start: 20040701, end: 20040701
  3. PRILOSEC [Concomitant]
     Route: 048
  4. CELEXA [Concomitant]
     Route: 048
  5. HYDROCHLOROTHIAZIDE [Concomitant]
     Route: 048
  6. ZOFRAN [Concomitant]
     Route: 048
  7. GLUCOPHAGE [Concomitant]
     Dosage: 5/500 MG
     Route: 048
  8. AMBIEN [Concomitant]
  9. MOTRIN [Concomitant]
  10. ACTOS [Concomitant]
     Route: 048

REACTIONS (2)
  - DEHYDRATION [None]
  - URINARY TRACT INFECTION [None]
